FAERS Safety Report 10381128 (Version 1)
Quarter: 2014Q1

REPORT INFORMATION
  Report Type: Spontaneous
  Country: US (occurrence: None)
  Receive Date: 20140306
  Receipt Date: 20140306
  Transmission Date: 20141002
  Serious: Yes (Other)
  Sender: FDA-Public Use
  Company Number: 163-21880-13030664

PATIENT
  Age: 87 Year
  Sex: Male

DRUGS (16)
  1. REVLIMID (LENALIDOMIDE) (5 MILLIGRAM, CAPSULES) [Suspect]
     Indication: PLASMA CELL MYELOMA
     Dosage: 07-FEB-2013 - DISCONTINUED?5 MG, 28 IN 28 D, PO
     Route: 048
     Dates: start: 20130207
  2. ZOMETA (ZOLEDRONIC ACID) [Concomitant]
  3. LOW ASPIRIN (ACETYLSALICYLIC ACID) [Concomitant]
  4. BENICAR HCT [Concomitant]
  5. CENTRUM ULTRA MEN^S [Concomitant]
  6. CYCLOPHOSPHAMIDE [Concomitant]
  7. FAMVIR (FAMCICLOVIR) [Concomitant]
  8. FOLIC ACID [Concomitant]
  9. GABAPENTIN [Concomitant]
  10. PANTOPRAZOLE [Concomitant]
  11. PROCHLORPERAZINE MALEATE [Concomitant]
  12. SAW PALMETTO (SERENOA REPENS) [Concomitant]
  13. SELENIUM [Concomitant]
  14. SIMVASTATIN [Concomitant]
  15. VITAMIN C (ASCORBIC ACID) [Concomitant]
  16. VITAMIN D3 (COLECALCIFEROL) [Concomitant]

REACTIONS (1)
  - Hypersensitivity [None]
